FAERS Safety Report 24112824 (Version 1)
Quarter: 2024Q3

REPORT INFORMATION
  Report Type: Spontaneous
  Country: US (occurrence: US)
  Receive Date: 20240719
  Receipt Date: 20240719
  Transmission Date: 20241016
  Serious: No
  Sender: PFIZER
  Company Number: US-PFIZER INC-202400219000

PATIENT
  Age: 36 Year
  Sex: Female

DRUGS (1)
  1. IBRANCE [Suspect]
     Active Substance: PALBOCICLIB
     Dosage: 125 MG, CYCLIC, 1 TABLET DAILY FOR 21 DAYS AND DON^T TAKE FOR 7 DAYS
     Route: 048
     Dates: start: 202201

REACTIONS (1)
  - Blood test abnormal [Not Recovered/Not Resolved]
